FAERS Safety Report 17894017 (Version 1)
Quarter: 2020Q2

REPORT INFORMATION
  Report Type: Spontaneous
  Country: BE (occurrence: BE)
  Receive Date: 20200615
  Receipt Date: 20200615
  Transmission Date: 20200714
  Serious: Yes (Death, Hospitalization, Other)
  Sender: FDA-Public Use
  Company Number: BE-FRESENIUS KABI-FK202005840

PATIENT
  Age: 45 Year
  Sex: Male

DRUGS (1)
  1. PARACETAMOL (MANUFACTURER UNKNOWN) [Suspect]
     Active Substance: ACETAMINOPHEN
     Indication: PRODUCT USED FOR UNKNOWN INDICATION
     Route: 065

REACTIONS (5)
  - Hyperammonaemic encephalopathy [Unknown]
  - Intracranial pressure increased [Fatal]
  - Cytotoxic oedema [Unknown]
  - Acute hepatic failure [Unknown]
  - Overdose [Unknown]
